FAERS Safety Report 6199190-2 (Version None)
Quarter: 2009Q2

REPORT INFORMATION
  Report Type: 
  Country: None (occurrence: None)
  Receive Date: 20090522
  Receipt Date: 20090424
  Transmission Date: 20091009
  Serious: No
  Sender: FDA-Public Use
  Company Number: A0780578A

PATIENT
  Sex: Male

DRUGS (2)
  1. VERAMYST [Suspect]
     Route: 045
     Dates: start: 20070101
  2. FLONASE [Suspect]
     Route: 045

REACTIONS (2)
  - DRUG INEFFECTIVE [None]
  - OVERDOSE [None]
